FAERS Safety Report 9395143 (Version 2)
Quarter: 2014Q3

REPORT INFORMATION
  Report Type: Spontaneous
  Country: JP (occurrence: None)
  Receive Date: 20130705
  Receipt Date: 20140808
  Transmission Date: 20150326
  Serious: Yes (Hospitalization, Other)
  Sender: FDA-Public Use
  Company Number: 2009JP005645

PATIENT
  Age: 44 Year
  Sex: Female

DRUGS (11)
  1. BENET [Suspect]
     Active Substance: RISEDRONIC ACID
     Indication: PRODUCT USED FOR UNKNOWN INDICATION
     Dosage: 2.5 MG, UNK/ D, ORAL
     Route: 048
     Dates: start: 20070524
  2. GASLON N [Concomitant]
  3. SULBACILLIN (AMPICILLIN SODIUM, AMPICILLIN SODIUM) [Concomitant]
  4. TAGAMET [Suspect]
     Active Substance: CIMETIDINE
  5. BLOPRESS (CANDESARTAN CILEXETIL) [Concomitant]
     Active Substance: CANDESARTAN CILEXETIL
  6. PREDONINE [Suspect]
     Active Substance: PREDNISOLONE\PREDNISOLONE ACETATE\PREDNISOLONE SODIUM SUCCINATE
     Indication: LUPUS NEPHRITIS
     Dosage: 20 MG, UNKNOWN/ D, ORAL
     Route: 048
     Dates: start: 20070329, end: 20070425
  7. PROGRAF [Suspect]
     Active Substance: TACROLIMUS\TACROLIMUS ANHYDROUS
     Indication: LUPUS NEPHRITIS
     Dosage: 3 MG, UNK/ D, ORAL
     Route: 048
     Dates: start: 20070329, end: 20070523
  8. SINLESTAL [Concomitant]
  9. ONEALFA [Concomitant]
     Active Substance: ALFACALCIDOL
  10. DALACIN-S (CLINDAMYCIN PHOSPHATE) [Concomitant]
  11. FLUMARIN  (FLOMOXEF SODIUM) [Concomitant]

REACTIONS (8)
  - Periodontitis [None]
  - Calculus urinary [None]
  - Hypertension [None]
  - Metrorrhagia [None]
  - Cellulitis [None]
  - Osteomyelitis [None]
  - Seasonal allergy [None]
  - Protein urine present [None]

NARRATIVE: CASE EVENT DATE: 20070418
